FAERS Safety Report 18818711 (Version 5)
Quarter: 2025Q3

REPORT INFORMATION
  Report Type: Report from Study
  Country: CA (occurrence: CA)
  Receive Date: 20210201
  Receipt Date: 20250924
  Transmission Date: 20251021
  Serious: Yes (Hospitalization, Other)
  Sender: TAKEDA
  Company Number: CA-TAKEDA-2020TUS040406

PATIENT
  Sex: Male

DRUGS (20)
  1. VEDOLIZUMAB [Suspect]
     Active Substance: VEDOLIZUMAB
     Indication: Crohn^s disease
  2. VEDOLIZUMAB [Suspect]
     Active Substance: VEDOLIZUMAB
     Dosage: 300 MILLIGRAM, Q4WEEKS
     Dates: start: 20201001
  3. VEDOLIZUMAB [Suspect]
     Active Substance: VEDOLIZUMAB
     Dosage: 300 MILLIGRAM, Q4WEEKS
  4. VEDOLIZUMAB [Suspect]
     Active Substance: VEDOLIZUMAB
     Dosage: 300 MILLIGRAM, Q4WEEKS
  5. VEDOLIZUMAB [Suspect]
     Active Substance: VEDOLIZUMAB
     Dosage: 300 MILLIGRAM, Q4WEEKS
  6. VEDOLIZUMAB [Suspect]
     Active Substance: VEDOLIZUMAB
     Dosage: 300 MILLIGRAM, Q4WEEKS
  7. NEXIUM [Concomitant]
     Active Substance: ESOMEPRAZOLE MAGNESIUM
  8. ENALAPRIL [Concomitant]
     Active Substance: ENALAPRIL
  9. SIMVASTATIN [Concomitant]
     Active Substance: SIMVASTATIN
  10. TAMSULOSIN [Concomitant]
     Active Substance: TAMSULOSIN
  11. LEVOTHYROXINE [Concomitant]
     Active Substance: LEVOTHYROXINE
  12. CYTOMEL [Concomitant]
     Active Substance: LIOTHYRONINE SODIUM
  13. FINASTERIDE [Concomitant]
     Active Substance: FINASTERIDE
  14. METOPROLOL [Concomitant]
     Active Substance: METOPROLOL
  15. LYRICA [Concomitant]
     Active Substance: PREGABALIN
  16. ASPIRIN [Concomitant]
     Active Substance: ASPIRIN
  17. OMEGA 3 [Concomitant]
     Active Substance: CAPSAICIN
  18. HERBALS\TURMERIC [Concomitant]
     Active Substance: HERBALS\TURMERIC
  19. VITAMINS [Concomitant]
     Active Substance: VITAMINS
  20. DOMPERIDONE [Concomitant]
     Active Substance: DOMPERIDONE

REACTIONS (8)
  - Crohn^s disease [Not Recovered/Not Resolved]
  - Vomiting [Unknown]
  - Headache [Unknown]
  - Pyrexia [Recovered/Resolved]
  - Oropharyngeal pain [Unknown]
  - Abdominal pain [Not Recovered/Not Resolved]
  - Constipation [Recovering/Resolving]
  - Nausea [Recovering/Resolving]
